FAERS Safety Report 22884504 (Version 3)
Quarter: 2023Q4

REPORT INFORMATION
  Report Type: Spontaneous
  Country: PT (occurrence: PT)
  Receive Date: 20230830
  Receipt Date: 20231010
  Transmission Date: 20240109
  Serious: Yes (Other)
  Sender: FDA-Public Use
  Company Number: None

PATIENT
  Age: 90 Year
  Sex: Female

DRUGS (21)
  1. NITROGLYCERIN [Suspect]
     Active Substance: NITROGLYCERIN
     Indication: Arrhythmia
     Dosage: DOSE 1 -1 PATCH/DAY,DISCONTINUED ABOUT 9-10 MNTHS
     Route: 062
     Dates: start: 202208, end: 2023
  2. NITROGLYCERIN [Suspect]
     Active Substance: NITROGLYCERIN
     Dosage: DOSE 2 - 1 PATCH/DAY, DISCONTINUED AGAIN ON DATE
     Route: 062
     Dates: start: 202307
  3. SULFASALAZINE [Suspect]
     Active Substance: SULFASALAZINE
     Indication: Myalgia
     Dosage: 500 MILLIGRAM, QD (DOSE 1 - 1 PER DAY)
     Route: 048
     Dates: start: 202301, end: 202303
  4. SULFASALAZINE [Suspect]
     Active Substance: SULFASALAZINE
     Indication: Rheumatoid arthritis
     Dosage: DOSE 2 - 3 PER DAY (NO MORE DETAILED INFORMATION)
     Route: 048
     Dates: start: 202303, end: 202305
  5. SULFASALAZINE [Suspect]
     Active Substance: SULFASALAZINE
     Dosage: DOSE 3 -2 LUNCH,2 DINNER,SUSPENDED TAKING FOR 1WK
     Route: 048
     Dates: start: 202305, end: 202307
  6. SULFASALAZINE [Suspect]
     Active Substance: SULFASALAZINE
     Dosage: DOSE 4 - 2 TABLETS ONCE A DAY, IN THE MORNING
     Route: 048
     Dates: start: 202308, end: 202308
  7. SULFASALAZINE [Suspect]
     Active Substance: SULFASALAZINE
     Dosage: 2 DF, BID (DOSE 5 - 2 TAB, EACH AT LUNCH, DINNER)
     Route: 048
     Dates: start: 202308
  8. SUCRALFATE [Concomitant]
     Active Substance: SUCRALFATE
     Dosage: UNK
     Route: 048
  9. PROLIA [Concomitant]
     Active Substance: DENOSUMAB
     Dosage: 60 MILLIGRAM (1 INJECTION EVERY 6 MONTHS)
     Route: 058
     Dates: start: 20220322
  10. LANSOPRAZOLE [Concomitant]
     Active Substance: LANSOPRAZOLE
     Dosage: UNK
     Route: 048
  11. TROMALYT [Concomitant]
     Active Substance: ASPIRIN
     Dosage: UNK
     Route: 048
  12. LYRICA [Concomitant]
     Active Substance: PREGABALIN
     Dosage: UNK
     Route: 048
  13. BROMAZEPAM [Concomitant]
     Active Substance: BROMAZEPAM
     Dosage: UNK
     Route: 048
  14. FUROSEMIDE [Concomitant]
     Active Substance: FUROSEMIDE
     Dosage: UNK
     Route: 048
  15. DICLOFENAC DIETHYLAMINE [Concomitant]
     Active Substance: DICLOFENAC DIETHYLAMINE
     Dosage: UNK
     Route: 065
  16. PREDNISOLONE [Concomitant]
     Active Substance: PREDNISOLONE
     Dosage: 5 MILLIGRAM, QD (DOSE 1 - 1 AT BREAKFAST)
     Route: 048
     Dates: start: 201402, end: 202305
  17. PREDNISOLONE [Concomitant]
     Active Substance: PREDNISOLONE
     Dosage: 1/2 AT BREAKFAST (DOSE DECREASE, AS PRE-DIABETES)
     Route: 048
     Dates: start: 202305
  18. PREDNISOLONE [Concomitant]
     Active Substance: PREDNISOLONE
     Dosage: 5 MILLIGRAM, QD (DOSE 3 - 1 AT BREAKFAST)
     Route: 048
     Dates: start: 202309
  19. BEN U RON [Concomitant]
     Dosage: UNK
     Route: 065
  20. DAPAGLIFLOZIN [Concomitant]
     Active Substance: DAPAGLIFLOZIN
     Dosage: UNK
     Route: 048
  21. EXFORGE [Concomitant]
     Active Substance: AMLODIPINE BESYLATE\VALSARTAN
     Dosage: UNK
     Route: 048

REACTIONS (6)
  - Skin induration [Recovered/Resolved]
  - Urticaria [Recovered/Resolved]
  - Dry skin [Recovered/Resolved]
  - Feeling hot [Recovered/Resolved]
  - Pruritus [Recovered/Resolved]
  - Erythema [Recovered/Resolved]

NARRATIVE: CASE EVENT DATE: 20230501
